FAERS Safety Report 16685080 (Version 2)
Quarter: 2019Q3

REPORT INFORMATION
  Report Type: Spontaneous
  Country: FR (occurrence: FR)
  Receive Date: 20190808
  Receipt Date: 20190809
  Transmission Date: 20191004
  Serious: Yes (Death, Hospitalization)
  Sender: FDA-Public Use
  Company Number: FR-TEVA-2019-FR-1090277

PATIENT
  Age: 87 Year
  Sex: Male
  Weight: 62 kg

DRUGS (3)
  1. RAMIPRIL. [Suspect]
     Active Substance: RAMIPRIL
     Indication: MYOCARDIAL INFARCTION
     Dosage: 1.25 MILLIGRAM FOR EVERY 1 DAYS
     Route: 048
     Dates: end: 20181109
  2. FUROSEMIDE. [Suspect]
     Active Substance: FUROSEMIDE
     Indication: CARDIAC FAILURE
     Dosage: 125 MG IN THE MORNING - 20 MG AT NOON
     Route: 048
  3. NEBIVOLOL. [Suspect]
     Active Substance: NEBIVOLOL
     Indication: MYOCARDIAL INFARCTION
     Dosage: 2.5 MILLIGRAM FOR EVERY 1 DAY
     Route: 048
     Dates: end: 20181108

REACTIONS (3)
  - Orthostatic hypotension [Recovered/Resolved]
  - Hypotension [Recovered/Resolved]
  - Fall [Recovered/Resolved]

NARRATIVE: CASE EVENT DATE: 201811
